FAERS Safety Report 9868084 (Version 1)
Quarter: 2014Q1

REPORT INFORMATION
  Report Type: Spontaneous
  Country: AT (occurrence: AT)
  Receive Date: 20140204
  Receipt Date: 20140204
  Transmission Date: 20141002
  Serious: Yes (Death, Other)
  Sender: FDA-Public Use
  Company Number: AT-CELGENEUS-009-50794-14013663

PATIENT
  Sex: 0

DRUGS (6)
  1. VIDAZA [Suspect]
     Indication: CHRONIC MYELOMONOCYTIC LEUKAEMIA
     Dosage: 75 MILLIGRAM/SQ. METER
     Route: 065
  2. VIDAZA [Suspect]
     Dosage: 100 MILLIGRAM
     Route: 065
  3. ERYTHROPOIETIN STIMULATING AGENTS [Concomitant]
     Indication: PRODUCT USED FOR UNKNOWN INDICATION
     Route: 065
  4. GRANULOCYTE COLONY-STIMULATING FACTOR NOS [Concomitant]
     Indication: PRODUCT USED FOR UNKNOWN INDICATION
     Route: 065
  5. IRON CHELATION [Concomitant]
     Indication: PRODUCT USED FOR UNKNOWN INDICATION
     Route: 065
  6. HYDROXYUREA [Concomitant]
     Indication: PRODUCT USED FOR UNKNOWN INDICATION
     Route: 065

REACTIONS (33)
  - Death [Fatal]
  - Sudden cardiac death [Fatal]
  - Acute myeloid leukaemia [Unknown]
  - Arrhythmia [Unknown]
  - Pancytopenia [Unknown]
  - Thrombocytopenia [Unknown]
  - Anaemia [Unknown]
  - Heart valve incompetence [Unknown]
  - Myocardial ischaemia [Unknown]
  - Left ventricular failure [Unknown]
  - Haemorrhage [Unknown]
  - Febrile neutropenia [Unknown]
  - Renal disorder [Unknown]
  - Embolism [Unknown]
  - Lung infection [Unknown]
  - Full blood count decreased [Unknown]
  - Product used for unknown indication [Unknown]
  - Fall [Unknown]
  - Neurotoxicity [Unknown]
  - Gastrointestinal toxicity [Unknown]
  - Nausea [Unknown]
  - Vomiting [Unknown]
  - Constipation [Unknown]
  - Diarrhoea [Unknown]
  - Infection [Unknown]
  - Metabolic disorder [Unknown]
  - Fatigue [Unknown]
  - Pain [Unknown]
  - Herpes simplex [Unknown]
  - Cytomegalovirus infection [Unknown]
  - Chronic myelomonocytic leukaemia [Unknown]
  - Injection site reaction [Unknown]
  - No therapeutic response [Unknown]
